FAERS Safety Report 5800691-4 (Version None)
Quarter: 2008Q3

REPORT INFORMATION
  Report Type: 
  Country: None (occurrence: None)
  Receive Date: 20080703
  Receipt Date: 20080623
  Transmission Date: 20090109
  Serious: Yes (Other)
  Sender: FDA-Public Use
  Company Number: PHHO2007MX11622

PATIENT
  Sex: Female

DRUGS (1)
  1. DIOVAN HCT [Suspect]
     Indication: HYPERTENSION
     Dosage: 160/12.5MG DAILY
     Route: 048
     Dates: start: 20060301

REACTIONS (5)
  - ARRHYTHMIA [None]
  - CARDIAC PACEMAKER INSERTION [None]
  - COUGH [None]
  - EMBOLISM [None]
  - PNEUMONIA [None]
